FAERS Safety Report 7338937-6 (Version None)
Quarter: 2011Q1

REPORT INFORMATION
  Report Type: 
  Country: None (occurrence: None)
  Receive Date: 20110304
  Receipt Date: 20110304
  Transmission Date: 20110831
  Serious: Yes (Hospitalization)
  Sender: FDA-Public Use
  Company Number: None

PATIENT
  Sex: Female
  Weight: 63.7 kg

DRUGS (3)
  1. TAXOTERE [Suspect]
     Dosage: 130 MG
     Dates: end: 20110217
  2. HERCEPTIN [Suspect]
     Dosage: 262 MG
     Dates: end: 20110224
  3. CARBOPLATIN [Suspect]
     Dosage: 600 MG
     Dates: end: 20110217

REACTIONS (4)
  - LUNG INFILTRATION [None]
  - ATELECTASIS [None]
  - HILAR LYMPHADENOPATHY [None]
  - BRONCHITIS [None]
